FAERS Safety Report 17469525 (Version 1)
Quarter: 2020Q1

REPORT INFORMATION
  Report Type: Spontaneous
  Country: CA (occurrence: CA)
  Receive Date: 20200227
  Receipt Date: 20200227
  Transmission Date: 20200409
  Serious: Yes (Other)
  Sender: FDA-Public Use
  Company Number: CA-SHIRE-CA202007562

PATIENT

DRUGS (8)
  1. MEZAVANT [Suspect]
     Active Substance: MESALAMINE
     Dosage: 3 DOSAGE FORM
     Route: 065
  2. ENTYVIO [Suspect]
     Active Substance: VEDOLIZUMAB
     Indication: COLITIS ULCERATIVE
     Dosage: 300 MILLIGRAM (WEEK 0,2,6, EVERY 8 WEEKS)
     Route: 065
     Dates: start: 20191217
  3. ASACOL [Concomitant]
     Active Substance: MESALAMINE
     Indication: PRODUCT USED FOR UNKNOWN INDICATION
  4. PREDNISONE. [Concomitant]
     Active Substance: PREDNISONE
     Indication: PRODUCT USED FOR UNKNOWN INDICATION
  5. SALOFALK [MESALAZINE] [Concomitant]
     Active Substance: MESALAMINE
     Indication: PRODUCT USED FOR UNKNOWN INDICATION
  6. MEZAVANT [Suspect]
     Active Substance: MESALAMINE
     Indication: COLITIS ULCERATIVE
     Dosage: UNK
     Route: 065
  7. MEZAVANT [Suspect]
     Active Substance: MESALAMINE
     Dosage: 2 DOSAGE FORM, 1X/DAY:QD
     Route: 065
  8. IMURAN [Concomitant]
     Active Substance: AZATHIOPRINE
     Indication: PRODUCT USED FOR UNKNOWN INDICATION

REACTIONS (3)
  - Foot deformity [Unknown]
  - Haematochezia [Recovered/Resolved]
  - Dyspepsia [Unknown]
